FAERS Safety Report 24110761 (Version 2)
Quarter: 2024Q3

REPORT INFORMATION
  Report Type: Spontaneous
  Country: US (occurrence: US)
  Receive Date: 20240718
  Receipt Date: 20240810
  Transmission Date: 20241017
  Serious: Yes (Hospitalization, Other)
  Sender: TEVA
  Company Number: US-TEVA-VS-3219739

PATIENT
  Age: 77 Year
  Sex: Female

DRUGS (7)
  1. ISONIAZID [Suspect]
     Active Substance: ISONIAZID
     Indication: Latent tuberculosis
     Dosage: DOSE RESUMED AFTER SKIN GRAFT
     Route: 065
  2. ISONIAZID [Suspect]
     Active Substance: ISONIAZID
     Indication: Latent tuberculosis
     Dosage: INITIAL DOSE BEFORE SKIN GRAFT NOT STATED
     Route: 065
  3. FLUCONAZOLE [Suspect]
     Active Substance: FLUCONAZOLE
     Indication: Otitis externa
     Route: 065
  4. MEROPENEM [Suspect]
     Active Substance: MEROPENEM
     Indication: Otitis externa
     Dosage: 10 DAY COURSE
     Route: 065
  5. MEROPENEM [Suspect]
     Active Substance: MEROPENEM
     Indication: Otitis externa
     Dosage: THERAPY RE-INITIATED; DOSE NOT STATED
     Route: 065
  6. PREDNISONE [Concomitant]
     Active Substance: PREDNISONE
     Indication: Adrenocortical steroid therapy
     Dosage: DOSE TAPERED
     Route: 065
  7. PREDNISONE [Concomitant]
     Active Substance: PREDNISONE
     Indication: Adrenocortical steroid therapy
     Dosage: INITIAL DOSE NOT STATED
     Route: 065

REACTIONS (11)
  - Blood creatinine increased [Recovering/Resolving]
  - Linear IgA disease [Recovering/Resolving]
  - Klebsiella infection [Recovering/Resolving]
  - Candida infection [Recovering/Resolving]
  - Pseudomonas infection [Recovering/Resolving]
  - Otitis externa [Recovering/Resolving]
  - Multiple drug hypersensitivity [Recovering/Resolving]
  - Drug reaction with eosinophilia and systemic symptoms [Recovering/Resolving]
  - Rash [Recovering/Resolving]
  - Face oedema [Recovering/Resolving]
  - Eosinophilia [Recovering/Resolving]
